FAERS Safety Report 25598313 (Version 3)
Quarter: 2025Q3

REPORT INFORMATION
  Report Type: Spontaneous
  Country: US (occurrence: US)
  Receive Date: 20250723
  Receipt Date: 20250815
  Transmission Date: 20251021
  Serious: Yes (Other)
  Sender: GE HEALTHCARE
  Company Number: US-GE HEALTHCARE-2025CSU009672

PATIENT
  Sex: Male
  Weight: 65.5 kg

DRUGS (2)
  1. OPTISON [Suspect]
     Active Substance: HUMAN ALBUMIN MICROSPHERES\PERFLUTREN
     Indication: Echocardiogram
     Route: 065
     Dates: start: 20250714
  2. RISPERIDONE [Concomitant]
     Active Substance: RISPERIDONE
     Dosage: 3 MG, BID
     Route: 048
     Dates: start: 20180101

REACTIONS (1)
  - Atrial fibrillation [Recovered/Resolved]

NARRATIVE: CASE EVENT DATE: 20250714
